FAERS Safety Report 10012569 (Version 2)
Quarter: 2014Q2

REPORT INFORMATION
  Report Type: Spontaneous
  Country: HR (occurrence: HR)
  Receive Date: 20140314
  Receipt Date: 20140428
  Transmission Date: 20141212
  Serious: Yes (Other)
  Sender: FDA-Public Use
  Company Number: HR-ABBVIE-14P-216-1210608-00

PATIENT
  Sex: Male

DRUGS (1)
  1. HUMIRA [Suspect]
     Indication: PSORIASIS
     Dates: start: 20131107, end: 20140123

REACTIONS (5)
  - Hepatic lesion [Unknown]
  - Hepatotoxicity [Unknown]
  - Generalised erythema [Recovering/Resolving]
  - Dermatitis exfoliative [Recovered/Resolved]
  - Drug ineffective [Unknown]
